FAERS Safety Report 25902039 (Version 1)
Quarter: 2025Q4

REPORT INFORMATION
  Report Type: Spontaneous
  Country: US (occurrence: US)
  Receive Date: 20251009
  Receipt Date: 20251009
  Transmission Date: 20260118
  Serious: No
  Sender: SANOFI AVENTIS
  Company Number: US-SA-2025SA301584

PATIENT
  Age: 77 Year
  Sex: Male

DRUGS (3)
  1. PLAVIX [Suspect]
     Active Substance: CLOPIDOGREL BISULFATE
     Indication: Product used for unknown indication
     Dosage: UNK
  2. TYVASO [Suspect]
     Active Substance: TREPROSTINIL
     Indication: Pulmonary hypertension
     Dosage: 64 UG
     Route: 055
     Dates: start: 20250630
  3. TYVASO [Suspect]
     Active Substance: TREPROSTINIL
     Indication: Interstitial lung disease

REACTIONS (1)
  - Haemorrhage subcutaneous [Recovering/Resolving]

NARRATIVE: CASE EVENT DATE: 20250901
